FAERS Safety Report 22960347 (Version 3)
Quarter: 2024Q2

REPORT INFORMATION
  Report Type: Spontaneous
  Country: US (occurrence: US)
  Receive Date: 20230920
  Receipt Date: 20240422
  Transmission Date: 20240716
  Serious: No
  Sender: FDA-Public Use
  Company Number: US-GILEAD-2023-0644334

PATIENT

DRUGS (41)
  1. TRUVADA [Suspect]
     Active Substance: EMTRICITABINE\TENOFOVIR DISOPROXIL FUMARATE
     Indication: Asymptomatic HIV infection
     Dosage: UNK
     Route: 048
     Dates: start: 20130101, end: 20161201
  2. TRUVADA [Suspect]
     Active Substance: EMTRICITABINE\TENOFOVIR DISOPROXIL FUMARATE
     Dosage: 1 DOSAGE FORM, QID
     Route: 048
     Dates: start: 20130101, end: 20161231
  3. COMPLERA [Suspect]
     Active Substance: EMTRICITABINE\RILPIVIRINE HYDROCHLORIDE\TENOFOVIR DISOPROXIL FUMARATE
     Indication: Asymptomatic HIV infection
     Dosage: UNK
     Route: 048
     Dates: start: 20160101, end: 20160930
  4. COMPLERA [Suspect]
     Active Substance: EMTRICITABINE\RILPIVIRINE HYDROCHLORIDE\TENOFOVIR DISOPROXIL FUMARATE
     Dosage: 1 DOSAGE FORM, Q1WK
     Route: 048
     Dates: start: 20160914
  5. ODEFSEY [Concomitant]
     Active Substance: EMTRICITABINE\RILPIVIRINE HYDROCHLORIDE\TENOFOVIR ALAFENAMIDE FUMARATE
  6. ARIVAN [Concomitant]
  7. FISH OIL [Concomitant]
     Active Substance: FISH OIL
  8. B COMPLEX [AMINOBENZOIC ACID;BIOTIN;CHOLINE BITARTRATE;FOLIC ACID;INOS [Concomitant]
  9. VIAGRA [Concomitant]
     Active Substance: SILDENAFIL CITRATE
  10. THERA-M [Concomitant]
  11. ACIDOPHILUS [Concomitant]
     Active Substance: LACTOBACILLUS ACIDOPHILUS
  12. LIPITOR [Concomitant]
     Active Substance: ATORVASTATIN CALCIUM
  13. ACYCLOVIR [Concomitant]
     Active Substance: ACYCLOVIR
  14. ARTIFICIAL TEARS [CARMELLOSE SODIUM] [Concomitant]
  15. METAMUCIL [Concomitant]
     Active Substance: PLANTAGO SEED
  16. ACYCLOVIR [Concomitant]
     Active Substance: ACYCLOVIR
  17. FINASTERIDE [Concomitant]
     Active Substance: FINASTERIDE
  18. IBUPROFEN [Concomitant]
     Active Substance: IBUPROFEN
  19. HYDROCODONE [Concomitant]
     Active Substance: HYDROCODONE
  20. MONUROL [Concomitant]
     Active Substance: FOSFOMYCIN TROMETHAMINE
  21. ANUSOL HC [Concomitant]
     Active Substance: HYDROCORTISONE
  22. NICODERM CQ [Concomitant]
     Active Substance: NICOTINE
  23. METRONIDAZOLE BENZOATE [Concomitant]
     Active Substance: METRONIDAZOLE BENZOATE
  24. AMOXICILLIN [Concomitant]
     Active Substance: AMOXICILLIN
  25. CIPROFLOXACIN [Concomitant]
     Active Substance: CIPROFLOXACIN
  26. NAPROSYN [Concomitant]
     Active Substance: NAPROXEN
  27. COLACE [Concomitant]
     Active Substance: DOCUSATE SODIUM
  28. INTELENCE [Concomitant]
     Active Substance: ETRAVIRINE
  29. AZITHROMYCIN [Concomitant]
     Active Substance: AZITHROMYCIN
  30. AZITHROMYCIN [Concomitant]
     Active Substance: AZITHROMYCIN
  31. CHANTIX [Concomitant]
     Active Substance: VARENICLINE TARTRATE
  32. PRILOSEC [Concomitant]
     Active Substance: OMEPRAZOLE MAGNESIUM
  33. IMODIUM [Concomitant]
     Active Substance: LOPERAMIDE HYDROCHLORIDE
  34. REYATAZ [Concomitant]
     Active Substance: ATAZANAVIR SULFATE
  35. NORVIR [Concomitant]
     Active Substance: RITONAVIR
  36. ALUMINUM HYDROXIDE\MAGNESIUM CARBONATE [Concomitant]
     Active Substance: ALUMINUM HYDROXIDE\MAGNESIUM CARBONATE
  37. LIDOCAN [Concomitant]
  38. VICODIN [Concomitant]
     Active Substance: ACETAMINOPHEN\HYDROCODONE BITARTRATE
  39. LOTRIMIN [Concomitant]
     Active Substance: CLOTRIMAZOLE
  40. EPZICOM [Concomitant]
     Active Substance: ABACAVIR SULFATE\LAMIVUDINE
  41. RESTORIL [Concomitant]
     Active Substance: TEMAZEPAM

REACTIONS (1)
  - Bone density decreased [Unknown]
